FAERS Safety Report 14590131 (Version 1)
Quarter: 2018Q1

REPORT INFORMATION
  Report Type: Spontaneous
  Country: BE (occurrence: BE)
  Receive Date: 20180302
  Receipt Date: 20180302
  Transmission Date: 20180509
  Serious: Yes (Hospitalization)
  Sender: FDA-Public Use
  Company Number: BE-WEST-WARD PHARMACEUTICALS CORP.-BE-H14001-18-01355

PATIENT
  Age: 77 Year
  Sex: Male
  Weight: 87 kg

DRUGS (9)
  1. PROLOPA 250 [Concomitant]
     Indication: PARKINSON^S DISEASE
     Dosage: 0.75 MG, 3 IN 1 D
     Route: 065
     Dates: start: 20090101
  2. ZYLORIC [Concomitant]
     Active Substance: ALLOPURINOL
     Indication: GOUT
     Dosage: 100 MG, 1 IN 1 D
     Route: 048
     Dates: start: 20100101, end: 20171207
  3. TRAVATAN [Concomitant]
     Active Substance: TRAVOPROST
     Indication: GLAUCOMA
     Dosage: 2.5 ML, 1 IN 1 D
     Route: 047
     Dates: start: 20150101
  4. CYTARABINE. [Suspect]
     Active Substance: CYTARABINE
     Indication: ACUTE MYELOID LEUKAEMIA
     Dosage: 20 MG/M2, 1 IN 1 D, DAYS 1-10 OF EACH 28-DAY CYCLE ; CYCLICAL
     Route: 058
     Dates: start: 20171211
  5. NORMAL SALINE SOLUTION [Concomitant]
     Indication: PROPHYLAXIS
     Dosage: 10 LIT, UNK
     Route: 042
     Dates: start: 20171211, end: 20171215
  6. VENETOCLAX. [Suspect]
     Active Substance: VENETOCLAX
     Indication: ACUTE MYELOID LEUKAEMIA
     Dosage: UNK UNK, 1 IN 1 D (1)
     Route: 048
     Dates: start: 20171211
  7. ZYLORIC [Concomitant]
     Active Substance: ALLOPURINOL
     Indication: PROPHYLAXIS
     Dosage: 300 MG, 1 IN 1 D
     Route: 048
     Dates: start: 20171207
  8. PANTOMED (DEXPANTHENOL) [Concomitant]
     Active Substance: DEXPANTHENOL
     Indication: PROPHYLAXIS
     Dosage: 20 MG, 1 IN 1 D
     Route: 048
     Dates: start: 20171212
  9. ALLOPURINOL. [Concomitant]
     Active Substance: ALLOPURINOL
     Indication: PROPHYLAXIS
     Dosage: ()
     Route: 048

REACTIONS (1)
  - Febrile neutropenia [Recovered/Resolved]

NARRATIVE: CASE EVENT DATE: 20180122
